FAERS Safety Report 12058119 (Version 1)
Quarter: 2016Q1

REPORT INFORMATION
  Report Type: Spontaneous
  Country: US (occurrence: US)
  Receive Date: 20160210
  Receipt Date: 20160210
  Transmission Date: 20160526
  Serious: Yes (Other)
  Sender: FDA-Public Use
  Company Number: US-BEH-2016058498

PATIENT
  Sex: Female
  Weight: 74 kg

DRUGS (13)
  1. IBUPROFEN. [Concomitant]
     Active Substance: IBUPROFEN
  2. LORATADINE. [Concomitant]
     Active Substance: LORATADINE
  3. HIZENTRA [Suspect]
     Active Substance: HUMAN IMMUNOGLOBULIN G
     Route: 058
  4. ASPIRIN. [Concomitant]
     Active Substance: ASPIRIN
  5. DIAZEPAM. [Concomitant]
     Active Substance: DIAZEPAM
  6. HIZENTRA [Suspect]
     Active Substance: HUMAN IMMUNOGLOBULIN G
     Indication: CONGENITAL HYPOGAMMAGLOBULINAEMIA
     Route: 058
  7. DIPHENHYDRAMINE. [Concomitant]
     Active Substance: DIPHENHYDRAMINE
  8. DULERA [Concomitant]
     Active Substance: FORMOTEROL FUMARATE DIHYDRATE\MOMETASONE FUROATE
  9. ACETAMINOPHEN. [Concomitant]
     Active Substance: ACETAMINOPHEN
  10. DIAZEPAM. [Concomitant]
     Active Substance: DIAZEPAM
  11. EPIPEN [Concomitant]
     Active Substance: EPINEPHRINE
  12. ASPIRIN. [Concomitant]
     Active Substance: ASPIRIN
  13. LORATADINE. [Concomitant]
     Active Substance: LORATADINE

REACTIONS (1)
  - Breast mass [Unknown]
